FAERS Safety Report 9493424 (Version 1)
Quarter: 2013Q3

REPORT INFORMATION
  Report Type: Spontaneous
  Country: US (occurrence: US)
  Receive Date: 20130902
  Receipt Date: 20130902
  Transmission Date: 20140515
  Serious: Yes (Hospitalization, Other)
  Sender: FDA-Public Use
  Company Number: US-PFIZER INC-2013250379

PATIENT
  Age: 58 Year
  Sex: Female
  Weight: 68.03 kg

DRUGS (6)
  1. NEURONTIN [Suspect]
     Indication: DEPRESSION
     Dosage: UNK
  2. NEURONTIN [Suspect]
     Indication: NEURALGIA
  3. HYDROMORPHONE [Concomitant]
     Indication: PAIN
     Dosage: UNK
  4. LASIX [Concomitant]
     Dosage: UNK
  5. VALIUM [Concomitant]
     Dosage: 5 MG, UNK
  6. POTASSIUM [Concomitant]
     Dosage: UNK

REACTIONS (12)
  - Off label use [Unknown]
  - Dehydration [Unknown]
  - Blood potassium decreased [Recovered/Resolved]
  - Pneumonia [Unknown]
  - Nausea [Unknown]
  - Malaise [Unknown]
  - Weight increased [Unknown]
  - Fluid retention [Unknown]
  - Impaired driving ability [Unknown]
  - Feeling abnormal [Unknown]
  - Dizziness [Unknown]
  - Pain [Unknown]
